FAERS Safety Report 16724424 (Version 1)
Quarter: 2019Q3

REPORT INFORMATION
  Report Type: Spontaneous
  Country: CN (occurrence: CN)
  Receive Date: 20190821
  Receipt Date: 20190821
  Transmission Date: 20191005
  Serious: Yes (Other)
  Sender: FDA-Public Use
  Company Number: CN-ASTRAZENECA-2019SE53931

PATIENT
  Age: 73 Year
  Sex: Female
  Weight: 65 kg

DRUGS (5)
  1. NITRENDIPINE [Concomitant]
     Active Substance: NITRENDIPINE
  2. METOPROLOL. [Concomitant]
     Active Substance: METOPROLOL
  3. PROMETHAZINE [Concomitant]
     Active Substance: PROMETHAZINE HYDROCHLORIDE
  4. BUDESONIDE. [Suspect]
     Active Substance: BUDESONIDE
     Indication: ASTHMA
     Route: 055
     Dates: start: 20190321
  5. COMPOUND IPRATROPIUM BROMIDE SOLUTION FOR INHALATION [Suspect]
     Active Substance: IPRATROPIUM BROMIDE
     Indication: ASTHMA
     Dosage: 2.5 MG TWO TIMES A DAY BY INHALATION
     Route: 065

REACTIONS (7)
  - Nervous system disorder [Recovered/Resolved with Sequelae]
  - Peripheral coldness [Recovered/Resolved with Sequelae]
  - Ventricular extrasystoles [Recovered/Resolved with Sequelae]
  - Seizure [Recovered/Resolved with Sequelae]
  - Sinus tachycardia [Recovered/Resolved with Sequelae]
  - Electrocardiogram ST segment depression [Recovered/Resolved with Sequelae]
  - Electrocardiogram abnormal [Recovered/Resolved with Sequelae]
